FAERS Safety Report 9676901 (Version 2)
Quarter: 2013Q4

REPORT INFORMATION
  Report Type: Spontaneous
  Country: CL (occurrence: CL)
  Receive Date: 20131107
  Receipt Date: 20131119
  Transmission Date: 20140711
  Serious: Yes (Hospitalization)
  Sender: FDA-Public Use
  Company Number: CL-AMGEN-CHLSP2013078131

PATIENT
  Age: 21 Year
  Sex: Female

DRUGS (7)
  1. ENBREL [Suspect]
     Indication: JUVENILE IDIOPATHIC ARTHRITIS
     Dosage: 50 MG, UNK
     Route: 058
     Dates: start: 2009
  2. METHOTREXATE                       /00113802/ [Concomitant]
     Dosage: UNK
  3. PREDNISONE [Concomitant]
     Dosage: UNK
  4. FOLIC ACID [Concomitant]
     Dosage: UNK
  5. OMEPRAZOLE [Concomitant]
     Dosage: UNK
     Dates: start: 2009
  6. TRAMAL [Concomitant]
     Dosage: UNK
  7. CYCLOBENZAPRINE [Concomitant]
     Dosage: UNK
     Dates: start: 20131004

REACTIONS (1)
  - Arthropathy [Recovered/Resolved]
